FAERS Safety Report 4634529-8 (Version None)
Quarter: 2005Q2

REPORT INFORMATION
  Report Type: 
  Country: None (occurrence: None)
  Receive Date: 20050413
  Receipt Date: 20050407
  Transmission Date: 20051028
  Serious: Yes (Other)
  Sender: FDA-Public Use
  Company Number: US-MERCK-0504USA00992

PATIENT
  Sex: Female

DRUGS (2)
  1. VIOXX [Suspect]
     Route: 048
     Dates: start: 20000101, end: 20030101
  2. CELEBREX [Suspect]
     Route: 065
     Dates: start: 20000101, end: 20030101

REACTIONS (2)
  - CORONARY ARTERY OCCLUSION [None]
  - HEART INJURY [None]
